FAERS Safety Report 8617301-3 (Version None)
Quarter: 2012Q3

REPORT INFORMATION
  Report Type: 
  Country: None (occurrence: None)
  Receive Date: 20120823
  Receipt Date: 20120814
  Transmission Date: 20120928
  Serious: Yes (Hospitalization, Disabling, Other)
  Sender: FDA-Public Use
  Company Number: US-ASTRAZENECA-2012SE40787

PATIENT
  Age: 39 Year
  Sex: Female
  Weight: 113.4 kg

DRUGS (19)
  1. SEROQUEL [Suspect]
     Route: 048
     Dates: start: 20010101
  2. SEROQUEL [Suspect]
     Route: 048
     Dates: start: 20010101
  3. TRAMADOL HCL [Concomitant]
  4. SEROQUEL [Suspect]
     Indication: BIPOLAR DISORDER
     Route: 048
  5. BUPROPION HCL [Concomitant]
  6. SEROQUEL [Suspect]
     Indication: INSOMNIA
     Route: 048
  7. SEROQUEL [Suspect]
     Indication: ATTENTION DEFICIT/HYPERACTIVITY DISORDER
     Route: 048
  8. SEROQUEL [Suspect]
     Indication: SLEEP DISORDER
     Route: 048
  9. SEROQUEL [Suspect]
     Route: 048
     Dates: start: 20010101
  10. SEROQUEL [Suspect]
     Indication: MAJOR DEPRESSION
     Route: 048
  11. SEROQUEL [Suspect]
     Route: 048
     Dates: start: 20010101
  12. SEROQUEL [Suspect]
     Route: 048
     Dates: start: 20010101
  13. METHYLTHENID [Concomitant]
  14. DEPAKOTE ER [Concomitant]
  15. LYRICA [Concomitant]
  16. HYDROCODONE BITARTRATE [Concomitant]
     Dosage: 10/3.25 2 TABS THREE TIMES A DAY
  17. SEROQUEL [Suspect]
     Indication: ANXIETY
     Route: 048
  18. SEROQUEL [Suspect]
     Route: 048
     Dates: start: 20010101
  19. ZOLOFT [Concomitant]

REACTIONS (5)
  - ANKLE FRACTURE [None]
  - DRUG DOSE OMISSION [None]
  - ACCIDENT AT WORK [None]
  - INSOMNIA [None]
  - COMPLEX REGIONAL PAIN SYNDROME [None]
